FAERS Safety Report 6912164-6 (Version None)
Quarter: 2010Q3

REPORT INFORMATION
  Report Type: 
  Country: None (occurrence: None)
  Receive Date: 20100806
  Receipt Date: 20080212
  Transmission Date: 20110219
  Serious: Yes (Other)
  Sender: FDA-Public Use
  Company Number: US-PFIZER INC-2008013972

PATIENT
  Age: 34 Year
  Sex: Female

DRUGS (3)
  1. CYTOTEC [Suspect]
     Indication: LABOUR INDUCTION
  2. VIRACEPT [Concomitant]
     Indication: HIV INFECTION
     Route: 048
     Dates: start: 20060309
  3. COMBIVIR [Concomitant]
     Indication: HIV INFECTION
     Route: 048
     Dates: start: 20060309

REACTIONS (2)
  - EVACUATION OF RETAINED PRODUCTS OF CONCEPTION [None]
  - OFF LABEL USE [None]
